FAERS Safety Report 9894292 (Version 1)
Quarter: 2014Q1

REPORT INFORMATION
  Report Type: Spontaneous
  Country: ES (occurrence: ES)
  Receive Date: 20140213
  Receipt Date: 20140213
  Transmission Date: 20141002
  Serious: Yes (Other)
  Sender: FDA-Public Use
  Company Number: ES-GLAXOSMITHKLINE-B0967627A

PATIENT
  Age: 81 Year
  Sex: Male
  Weight: 83 kg

DRUGS (1)
  1. DUODART [Suspect]
     Indication: NEOPLASM PROSTATE
     Route: 048
     Dates: start: 20131017, end: 2013

REACTIONS (2)
  - Prurigo [Recovering/Resolving]
  - Eczema [Recovering/Resolving]
